FAERS Safety Report 9892357 (Version 1)
Quarter: 2014Q1

REPORT INFORMATION
  Report Type: Spontaneous
  Country: JP (occurrence: JP)
  Receive Date: 20140212
  Receipt Date: 20140212
  Transmission Date: 20141002
  Serious: Yes (Other)
  Sender: FDA-Public Use
  Company Number: JP-ACTAVIS-2014-02182

PATIENT
  Age: 33 Year
  Sex: Female

DRUGS (3)
  1. OXALIPLATIN (UNKNOWN) [Suspect]
     Indication: COLON CANCER STAGE III
     Dosage: UNK, 57 COURSES
     Route: 065
     Dates: start: 20050609
  2. CALCIUM FOLINATE (UNKNOWN) [Suspect]
     Indication: COLON CANCER STAGE III
     Dosage: UNK, 57 COURSES
     Route: 065
     Dates: start: 20050609
  3. 5-FLUOROURACIL /00098801/ [Suspect]
     Indication: COLON CANCER STAGE III
     Dosage: UNK, 57 COURSES
     Route: 065
     Dates: start: 20050609

REACTIONS (2)
  - Neuropathy peripheral [Recovering/Resolving]
  - Pancytopenia [Unknown]
